FAERS Safety Report 18104455 (Version 1)
Quarter: 2020Q3

REPORT INFORMATION
  Report Type: Spontaneous
  Country: US (occurrence: US)
  Receive Date: 20200803
  Receipt Date: 20200803
  Transmission Date: 20201103
  Serious: No
  Sender: FDA-Public Use
  Company Number: None

PATIENT
  Age: 57 Year
  Sex: Female
  Weight: 62.55 kg

DRUGS (4)
  1. EZETIMIBE 10MG TABLET [Suspect]
     Active Substance: EZETIMIBE
     Indication: HYPERCHOLESTEROLAEMIA
     Dosage: ?
     Route: 048
     Dates: start: 20200707, end: 20200731
  2. ATORVASTATIN [Suspect]
     Active Substance: ATORVASTATIN
  3. VITAMIN D SUPPLEMENTS [Concomitant]
  4. AMLODIPINE [Concomitant]
     Active Substance: AMLODIPINE BESYLATE

REACTIONS (11)
  - Blood cholesterol increased [None]
  - Low density lipoprotein increased [None]
  - Aspartate aminotransferase increased [None]
  - Alanine aminotransferase increased [None]
  - Manufacturing materials issue [None]
  - Total cholesterol/HDL ratio decreased [None]
  - Dry skin [None]
  - Non-high-density lipoprotein cholesterol increased [None]
  - High density lipoprotein increased [None]
  - Blood triglycerides increased [None]
  - Physical product label issue [None]

NARRATIVE: CASE EVENT DATE: 20200731
